FAERS Safety Report 7619941-7 (Version None)
Quarter: 2011Q3

REPORT INFORMATION
  Report Type: 
  Country: None (occurrence: None)
  Receive Date: 20110719
  Receipt Date: 20110714
  Transmission Date: 20111222
  Serious: Yes (Hospitalization)
  Sender: FDA-Public Use
  Company Number: FR-TEVA-288831ISR

PATIENT
  Sex: Female
  Weight: 39 kg

DRUGS (21)
  1. LENALIDOMIDE [Suspect]
     Indication: MULTIPLE MYELOMA
     Dosage: D 1-21 OUT OF 28
     Route: 048
     Dates: start: 20100329, end: 20110612
  2. MONTELUKAST SODIUM [Concomitant]
     Indication: ASTHMA
     Route: 048
     Dates: start: 20030201
  3. ZOLEDRONIC ACID [Concomitant]
     Indication: PROPHYLAXIS
     Route: 048
     Dates: start: 20100528
  4. DEXAMETHASONE [Suspect]
     Indication: MULTIPLE MYELOMA
     Dosage: 20 MILLIGRAM;
     Dates: start: 20100329, end: 20110612
  5. LENALIDOMIDE [Suspect]
     Dosage: D 1-21 OUT OF 28
     Route: 048
     Dates: start: 20110527
  6. TRIMEBUTINE MALEATE [Concomitant]
     Indication: PROPHYLAXIS
     Route: 048
     Dates: start: 20020201
  7. BUDESONIDE W/FORMOTEROL FUMARATE (SYMBICORT TURBUHALER ^DRACO^). [Concomitant]
     Indication: CHRONIC OBSTRUCTIVE PULMONARY DISEASE
  8. ESOMEPRAZOLE MAGNESIUM [Concomitant]
     Indication: GASTRITIS PROPHYLAXIS
     Route: 048
     Dates: start: 20100329
  9. ZOPICLONE [Concomitant]
     Indication: PROPHYLAXIS
     Route: 048
     Dates: start: 20100329
  10. BUDESONIDE W/FORMOTEROL FUMARATE (SYMBICORT TURBUHALER ^DRACO^). [Concomitant]
     Indication: ASTHMA
     Dosage: 4 DOSAGE FORMS;
     Dates: start: 20100313
  11. ALLOPURINOL [Concomitant]
     Indication: PROPHYLAXIS
     Route: 048
     Dates: start: 20100329
  12. EPOETIN ALFA [Concomitant]
     Indication: ANAEMIA
     Route: 058
     Dates: start: 20110429
  13. ASPIRIN [Concomitant]
     Indication: THROMBOSIS PROPHYLAXIS
     Route: 048
     Dates: start: 20090801
  14. MORPHINE SULFATE [Concomitant]
     Route: 048
     Dates: start: 20110429
  15. ACETAMINOPHEN [Concomitant]
     Indication: CHEST PAIN
     Route: 048
     Dates: start: 20100225
  16. ZOFENOPRIL (ZOFENYL) [Concomitant]
     Indication: HYPERTENSION
     Route: 048
     Dates: start: 20100816
  17. HYDROXYZINE HCL [Concomitant]
     Indication: PROPHYLAXIS
     Route: 048
     Dates: start: 20100816
  18. EBASTINE [Concomitant]
     Indication: ASTHMA
     Route: 048
     Dates: start: 20101122
  19. MORPHINE SULFATE [Concomitant]
     Indication: BONE PAIN
     Route: 048
     Dates: start: 20110429
  20. DEXAMETHASONE [Suspect]
     Dosage: 12 MILLIGRAM;
     Dates: start: 20110527
  21. POLYETHYLENE GLYCOL [Concomitant]
     Indication: CONSTIPATION
     Route: 048
     Dates: start: 20101122

REACTIONS (1)
  - LUNG DISORDER [None]
